FAERS Safety Report 14598275 (Version 1)
Quarter: 2018Q1

REPORT INFORMATION
  Report Type: Spontaneous
  Country: ES (occurrence: ES)
  Receive Date: 20180305
  Receipt Date: 20180305
  Transmission Date: 20180509
  Serious: Yes (Other)
  Sender: FDA-Public Use
  Company Number: ES-CELGENEUS-ESP-20180206858

PATIENT
  Age: 60 Year
  Sex: Male
  Weight: 80 kg

DRUGS (1)
  1. OTEZLA [Suspect]
     Active Substance: APREMILAST
     Indication: PRODUCT USED FOR UNKNOWN INDICATION
     Dosage: 30 MG/ 12G
     Route: 048
     Dates: start: 20160614, end: 20170904

REACTIONS (1)
  - Tachycardia [Unknown]

NARRATIVE: CASE EVENT DATE: 20161001
